FAERS Safety Report 24630993 (Version 1)
Quarter: 2024Q4

REPORT INFORMATION
  Report Type: Spontaneous
  Country: US (occurrence: None)
  Receive Date: 20241115
  Receipt Date: 20241115
  Transmission Date: 20250115
  Serious: Yes (Hospitalization)
  Sender: Public
  Company Number: None

PATIENT
  Sex: 0

DRUGS (1)
  1. TECLISTAMAB [Suspect]
     Active Substance: TECLISTAMAB

REACTIONS (11)
  - Cytokine release syndrome [None]
  - Lung infiltration [None]
  - Computerised tomogram abdomen abnormal [None]
  - Acute myocardial infarction [None]
  - Trigeminal neuralgia [None]
  - Symptom recurrence [None]
  - Shock [None]
  - Confusional state [None]
  - Mental status changes [None]
  - Hypoxia [None]
  - Hypotension [None]
